FAERS Safety Report 9237111 (Version 2)
Quarter: 2013Q2

REPORT INFORMATION
  Report Type: Report from Study
  Country: RO (occurrence: RO)
  Receive Date: 20130417
  Receipt Date: 20130424
  Transmission Date: 20140414
  Serious: Yes (Hospitalization)
  Sender: FDA-Public Use
  Company Number: RO-PFIZER INC-2013119828

PATIENT
  Sex: 0

DRUGS (2)
  1. RAMIPRIL [Suspect]
     Dosage: UNK
     Route: 065
  2. DICLOFENAC [Interacting]
     Dosage: UNK
     Route: 065

REACTIONS (2)
  - Drug interaction [Unknown]
  - Blood creatinine increased [Unknown]
